FAERS Safety Report 5933547-7 (Version None)
Quarter: 2008Q4

REPORT INFORMATION
  Report Type: 
  Country: None (occurrence: None)
  Receive Date: 20081024
  Receipt Date: 20081013
  Transmission Date: 20090506
  Serious: Yes (Hospitalization)
  Sender: FDA-Public Use
  Company Number: 2008AL011168

PATIENT
  Age: 39 Year
  Sex: Female

DRUGS (1)
  1. DEXAMETHASONE [Suspect]
     Indication: ADRENAL MASS
     Dosage: 2 MG;QID; PO
     Route: 048

REACTIONS (2)
  - ECG SIGNS OF MYOCARDIAL ISCHAEMIA [None]
  - PHAEOCHROMOCYTOMA [None]
